FAERS Safety Report 19352366 (Version 5)
Quarter: 2021Q4

REPORT INFORMATION
  Report Type: Report from Study
  Country: BR (occurrence: BR)
  Receive Date: 20210601
  Receipt Date: 20211209
  Transmission Date: 20220303
  Serious: Yes (Life-Threatening, Hospitalization, Other)
  Sender: FDA-Public Use
  Company Number: NVSC2021BR116783

PATIENT
  Sex: Female

DRUGS (8)
  1. FEMARA [Suspect]
     Active Substance: LETROZOLE
     Indication: Hormone therapy
     Dosage: UNK (STARTED 1 WEK BEFORE STARTING KISQALI, AFTER LUNCH)
     Route: 065
  2. LETROZOLE [Suspect]
     Active Substance: LETROZOLE
     Indication: Product used for unknown indication
     Dosage: UNK
     Route: 065
     Dates: start: 201803
  3. RIBOCICLIB [Concomitant]
     Active Substance: RIBOCICLIB
     Indication: Neoplasm malignant
     Dosage: 3 DF, QD (DAILY DURING21 DAYS AND PAUSE OF 7)
     Route: 065
     Dates: start: 20210228
  4. RIBOCICLIB [Concomitant]
     Active Substance: RIBOCICLIB
     Dosage: 3 DF
     Route: 065
  5. PREDNISONE [Concomitant]
     Active Substance: PREDNISONE
     Indication: Hypersensitivity
     Dosage: 20 MG
     Route: 065
  6. PREDNISONE [Concomitant]
     Active Substance: PREDNISONE
     Dosage: 60 MG, QD
     Route: 065
  7. VITAMIN D [Concomitant]
     Active Substance: VITAMIN D NOS
     Indication: Product used for unknown indication
     Dosage: UNK
     Route: 065
  8. HYDROXYZINE HYDROCHLORIDE [Concomitant]
     Active Substance: HYDROXYZINE HYDROCHLORIDE
     Indication: Hypersensitivity
     Dosage: UNK
     Route: 065

REACTIONS (16)
  - Paraneoplastic dermatomyositis [Unknown]
  - Device related infection [Unknown]
  - Pyrexia [Unknown]
  - Pain [Not Recovered/Not Resolved]
  - Metastases to lung [Unknown]
  - Anaemia [Unknown]
  - Immunosuppression [Recovering/Resolving]
  - Rheumatoid arthritis [Unknown]
  - Myalgia [Unknown]
  - Wound [Unknown]
  - Pleural effusion [Unknown]
  - Pain in extremity [Unknown]
  - Osteoarthritis [Not Recovered/Not Resolved]
  - Dyspnoea [Unknown]
  - Gait disturbance [Unknown]
  - Muscular weakness [Recovering/Resolving]

NARRATIVE: CASE EVENT DATE: 20180101
